FAERS Safety Report 7783427-X (Version None)
Quarter: 2011Q3

REPORT INFORMATION
  Report Type: 
  Country: None (occurrence: None)
  Receive Date: 20110928
  Receipt Date: 20110928
  Transmission Date: 20111222
  Serious: Yes (Life-Threatening, Hospitalization)
  Sender: FDA-Public Use
  Company Number: None

PATIENT
  Age: 64 Year
  Sex: Male
  Weight: 75 kg

DRUGS (1)
  1. CELEBREX [Suspect]
     Indication: RHEUMATOID ARTHRITIS
     Dosage: 200MG
     Route: 048

REACTIONS (4)
  - DYSPEPSIA [None]
  - CHEST PAIN [None]
  - HYPERHIDROSIS [None]
  - MIDDLE INSOMNIA [None]
